FAERS Safety Report 10055596 (Version 1)
Quarter: 2014Q2

REPORT INFORMATION
  Report Type: Spontaneous
  Country: US (occurrence: None)
  Receive Date: 20140402
  Receipt Date: 20140402
  Transmission Date: 20141212
  Serious: Yes (Death, Hospitalization, Other)
  Sender: FDA-Public Use
  Company Number: None

PATIENT
  Age: 4 Month
  Sex: Male
  Weight: 3.6 kg

DRUGS (2)
  1. PROPOFOL [Suspect]
     Indication: ANAESTHESIA
     Route: 042
     Dates: start: 20140324
  2. PROPOFOL [Suspect]
     Route: 042
     Dates: start: 20140324

REACTIONS (8)
  - Metabolic disorder [None]
  - Cardiopulmonary failure [None]
  - Acute respiratory failure [None]
  - Cardiogenic shock [None]
  - Liver injury [None]
  - Renal failure acute [None]
  - Circulatory collapse [None]
  - Multi-organ failure [None]
